FAERS Safety Report 8453496-2 (Version None)
Quarter: 2012Q2

REPORT INFORMATION
  Report Type: 
  Country: None (occurrence: None)
  Receive Date: 20120620
  Receipt Date: 20120521
  Transmission Date: 20120825
  Serious: No
  Sender: FDA-Public Use
  Company Number: US-VERTEX PHARMACEUTICALS INC.-AE-2012-007441

PATIENT
  Sex: Male
  Weight: 97.61 kg

DRUGS (6)
  1. ZYRTEC [Concomitant]
  2. ATARAX [Concomitant]
  3. RIBAVIRIN [Concomitant]
     Indication: HEPATITIS C
     Route: 048
     Dates: start: 20120314
  4. PEGASYS [Concomitant]
     Indication: HEPATITIS C
     Route: 058
     Dates: start: 20120314
  5. NEXIUM [Concomitant]
  6. INCIVEK [Suspect]
     Indication: HEPATITIS C
     Route: 048
     Dates: start: 20120314, end: 20120519

REACTIONS (5)
  - PYREXIA [None]
  - SWELLING FACE [None]
  - OEDEMA PERIPHERAL [None]
  - BLISTER [None]
  - FEELING ABNORMAL [None]
